FAERS Safety Report 9859905 (Version 1)
Quarter: 2014Q1

REPORT INFORMATION
  Report Type: Spontaneous
  Country: GB (occurrence: GB)
  Receive Date: 20140131
  Receipt Date: 20140131
  Transmission Date: 20141002
  Serious: Yes (Disabling, Other)
  Sender: FDA-Public Use
  Company Number: GB-WATSON-2014-00944

PATIENT
  Age: 43 Year
  Sex: Female
  Weight: 83 kg

DRUGS (4)
  1. CITALOPRAM (UNKNOWN) [Suspect]
     Indication: DEPRESSION
     Dosage: 30 MG, DAILY
     Route: 048
     Dates: start: 1997
  2. MIRTAZAPINE (UNKNOWN) [Suspect]
     Indication: DEPRESSION
     Dosage: 15 MG, DAILY
     Route: 048
  3. LAMICTAL [Suspect]
     Indication: TEMPORAL LOBE EPILEPSY
     Dosage: 100 MG, BID
     Route: 048
     Dates: start: 2010
  4. CLOBAZAM [Suspect]
     Indication: TEMPORAL LOBE EPILEPSY
     Dosage: 10 MG, BID
     Route: 048

REACTIONS (12)
  - Hallucination, visual [Not Recovered/Not Resolved]
  - Aggression [Not Recovered/Not Resolved]
  - Amnesia [Not Recovered/Not Resolved]
  - Insomnia [Not Recovered/Not Resolved]
  - Ataxia [Not Recovered/Not Resolved]
  - Headache [Not Recovered/Not Resolved]
  - Hyperhidrosis [Not Recovered/Not Resolved]
  - Tinnitus [Not Recovered/Not Resolved]
  - Fatigue [Not Recovered/Not Resolved]
  - Increased appetite [Not Recovered/Not Resolved]
  - Menorrhagia [Not Recovered/Not Resolved]
  - Bruxism [Not Recovered/Not Resolved]
